FAERS Safety Report 12774865 (Version 1)
Quarter: 2016Q3

REPORT INFORMATION
  Report Type: Spontaneous
  Country: US (occurrence: US)
  Receive Date: 20160923
  Receipt Date: 20160923
  Transmission Date: 20161109
  Serious: Yes (Other)
  Sender: FDA-Public Use
  Company Number: US-GLAXOSMITHKLINE-US2016139224

PATIENT
  Age: 65 Year
  Sex: Female

DRUGS (1)
  1. NICORETTE [Suspect]
     Active Substance: NICOTINE
     Indication: PRODUCT USED FOR UNKNOWN INDICATION
     Dosage: UNK
     Dates: start: 1986

REACTIONS (5)
  - Blood urine present [Unknown]
  - Hypertension [Unknown]
  - Cerebrovascular accident [Unknown]
  - White blood cell count decreased [Unknown]
  - Nicotine dependence [Unknown]

NARRATIVE: CASE EVENT DATE: 2012
